FAERS Safety Report 8310297 (Version 4)
Quarter: 2014Q1

REPORT INFORMATION
  Report Type: Report from Study
  Country: CA (occurrence: CA)
  Receive Date: 20111223
  Receipt Date: 20140108
  Transmission Date: 20141002
  Serious: Yes (Other)
  Sender: FDA-Public Use
  Company Number: CA-ROCHE-1024449

PATIENT
  Age: 77 Year
  Sex: Male
  Weight: 88.5 kg

DRUGS (17)
  1. RITUXAN [Suspect]
     Indication: RHEUMATOID ARTHRITIS
     Dosage: FREQUENCY: DAY 1 AD 15
     Route: 042
     Dates: start: 20101013, end: 20120904
  2. ACTEMRA [Suspect]
     Indication: RHEUMATOID ARTHRITIS
     Route: 042
     Dates: start: 20130315, end: 20131120
  3. DIPHENHYDRAMINE HCL [Concomitant]
     Indication: PREMEDICATION
     Route: 048
     Dates: start: 20110526
  4. ACETAMINOPHEN [Concomitant]
     Indication: PREMEDICATION
     Route: 048
     Dates: start: 20101013, end: 20120904
  5. METHYLPREDNISOLONE [Concomitant]
     Indication: PREMEDICATION
     Route: 042
     Dates: start: 20101013, end: 20120904
  6. SINGULAIR [Concomitant]
  7. SYNTHROID [Concomitant]
  8. HYDROCHLOROTHIAZIDE [Concomitant]
  9. FOLIC ACID [Concomitant]
  10. COLCHICINE [Concomitant]
  11. NEXIUM [Concomitant]
  12. METHOTREXATE [Concomitant]
  13. PREDNISONE [Concomitant]
  14. ADVAIR [Concomitant]
  15. VENTOLIN [Concomitant]
  16. XALATAN [Concomitant]
  17. CELEBREX [Concomitant]

REACTIONS (5)
  - Basal cell carcinoma [Recovered/Resolved]
  - Drug ineffective [Unknown]
  - Pain [Unknown]
  - Drug ineffective [Unknown]
  - Weight increased [Unknown]
